FAERS Safety Report 7625588-9 (Version None)
Quarter: 2011Q3

REPORT INFORMATION
  Report Type: 
  Country: None (occurrence: None)
  Receive Date: 20110721
  Receipt Date: 20110707
  Transmission Date: 20111222
  Serious: Yes (Other)
  Sender: FDA-Public Use
  Company Number: PL-RANBAXY-2011RR-46189

PATIENT
  Age: 12 Year
  Sex: Female

DRUGS (5)
  1. CYCLOSPORINE [Suspect]
     Indication: NEPHROTIC SYNDROME
     Route: 065
  2. PREDNISONE [Concomitant]
     Indication: NEPHROTIC SYNDROME
     Route: 065
  3. AZATHIOPRINE [Concomitant]
     Indication: NEPHROTIC SYNDROME
     Route: 065
  4. AMOXICILLIN AND CLAVULANATE POTASSIUM [Concomitant]
     Route: 065
  5. CLARITHROMYCIN [Suspect]
     Indication: BRONCHITIS
     Route: 065

REACTIONS (4)
  - RENAL FAILURE ACUTE [None]
  - RESPIRATORY TRACT INFECTION [None]
  - DRUG INTERACTION [None]
  - NEPHROTIC SYNDROME [None]
